FAERS Safety Report 6307102-3 (Version None)
Quarter: 2009Q3

REPORT INFORMATION
  Report Type: 
  Country: None (occurrence: None)
  Receive Date: 20090812
  Receipt Date: 20090729
  Transmission Date: 20100115
  Serious: Yes (Hospitalization)
  Sender: FDA-Public Use
  Company Number: FR-AMGEN-UK357830

PATIENT
  Sex: Male
  Weight: 85 kg

DRUGS (9)
  1. ARANESP [Suspect]
     Indication: ANAEMIA
     Route: 058
     Dates: start: 20090201, end: 20090618
  2. REVLIMID [Suspect]
  3. DEXAMETHASONE [Concomitant]
     Route: 065
  4. HYZAAR [Concomitant]
  5. GLUCOPHAGE [Concomitant]
  6. AMAREL [Concomitant]
  7. CRESTOR [Concomitant]
  8. CELIPROLOL [Concomitant]
  9. NEBIVOLOL HCL [Concomitant]

REACTIONS (2)
  - ANAEMIA [None]
  - APLASIA PURE RED CELL [None]
